FAERS Safety Report 6310831-9 (Version None)
Quarter: 2009Q3

REPORT INFORMATION
  Report Type: 
  Country: None (occurrence: None)
  Receive Date: 20090812
  Receipt Date: 20090724
  Transmission Date: 20100115
  Serious: Yes (Other)
  Sender: FDA-Public Use
  Company Number: 2009US-25912

PATIENT
  Age: 21 Year
  Sex: Female

DRUGS (1)
  1. ISOTRETINOIN [Suspect]
     Indication: DRUG USE FOR UNKNOWN INDICATION
     Dosage: 40 MG, QD, ORAL
     Route: 048
     Dates: start: 20090414, end: 20090601

REACTIONS (4)
  - BREAST TENDERNESS [None]
  - DRUG EXPOSURE DURING PREGNANCY [None]
  - POLLAKIURIA [None]
  - PREGNANCY WITH CONTRACEPTIVE DEVICE [None]
